FAERS Safety Report 13460814 (Version 1)
Quarter: 2017Q2

REPORT INFORMATION
  Report Type: Spontaneous
  Country: US (occurrence: US)
  Receive Date: 20170420
  Receipt Date: 20170420
  Transmission Date: 20170830
  Serious: No
  Sender: FDA-Public Use
  Company Number: US-DRREDDYS-USA/USA/17/0087176

PATIENT
  Age: 78 Year
  Sex: Male

DRUGS (1)
  1. SILVER SULFADIAZINE. [Suspect]
     Active Substance: SILVER SULFADIAZINE
     Indication: NAIL OPERATION
     Route: 061
     Dates: start: 20170130

REACTIONS (2)
  - Liquid product physical issue [Unknown]
  - Skin plaque [Unknown]
